FAERS Safety Report 23616835 (Version 1)
Quarter: 2024Q1

REPORT INFORMATION
  Report Type: Spontaneous
  Country: US (occurrence: US)
  Receive Date: 20240311
  Receipt Date: 20240311
  Transmission Date: 20240409
  Serious: Yes (Other)
  Sender: FDA-Public Use
  Company Number: US-OTSUKA-2024_005975

PATIENT
  Sex: Female

DRUGS (9)
  1. BUSULFAN [Suspect]
     Active Substance: BUSULFAN
     Indication: Immunodeficiency
     Dosage: UNK
     Route: 065
  2. BUSULFAN [Suspect]
     Active Substance: BUSULFAN
     Indication: Stem cell transplant
  3. BUSULFAN [Suspect]
     Active Substance: BUSULFAN
     Indication: Bone marrow conditioning regimen
  4. PENTOSTATIN [Suspect]
     Active Substance: PENTOSTATIN
     Indication: Immunodeficiency
     Dosage: UNK
     Route: 065
  5. PENTOSTATIN [Suspect]
     Active Substance: PENTOSTATIN
     Indication: Stem cell transplant
  6. PENTOSTATIN [Suspect]
     Active Substance: PENTOSTATIN
     Indication: Bone marrow conditioning regimen
  7. CYCLOPHOSPHAMIDE [Suspect]
     Active Substance: CYCLOPHOSPHAMIDE
     Indication: Immunodeficiency
     Dosage: TOTAL 24-40MG/KG OVER 8 DAYS (LOW DOSE)(
     Route: 065
  8. CYCLOPHOSPHAMIDE [Suspect]
     Active Substance: CYCLOPHOSPHAMIDE
     Indication: Stem cell transplant
     Dosage: TOTAL 100MG/KG (HIGH DOSE)
     Route: 065
  9. CYCLOPHOSPHAMIDE [Suspect]
     Active Substance: CYCLOPHOSPHAMIDE
     Indication: Bone marrow conditioning regimen

REACTIONS (3)
  - Hypothalamo-pituitary disorder [Not Recovered/Not Resolved]
  - Ovarian disorder [Not Recovered/Not Resolved]
  - Product use in unapproved indication [Unknown]
